FAERS Safety Report 23527654 (Version 1)
Quarter: 2024Q1

REPORT INFORMATION
  Report Type: Spontaneous
  Country: SG (occurrence: None)
  Receive Date: 20240215
  Receipt Date: 20240215
  Transmission Date: 20240410
  Serious: Yes (Other)
  Sender: FDA-Public Use
  Company Number: 2024A032235

PATIENT
  Age: 64 Year
  Sex: Male

DRUGS (2)
  1. OLAPARIB [Suspect]
     Active Substance: OLAPARIB
     Indication: Lung adenocarcinoma
     Route: 048
     Dates: start: 202006, end: 202102
  2. PEMETREXED/CARBOPLATIN [Concomitant]
     Indication: Lung adenocarcinoma
     Dosage: 2 CYCLES
     Dates: start: 202102, end: 202103

REACTIONS (3)
  - Drug resistance [Unknown]
  - Malignant neoplasm progression [Unknown]
  - Off label use [Unknown]
